FAERS Safety Report 12319311 (Version 1)
Quarter: 2016Q2

REPORT INFORMATION
  Report Type: Spontaneous
  Country: US (occurrence: US)
  Receive Date: 20160429
  Receipt Date: 20160429
  Transmission Date: 20160815
  Serious: No
  Sender: FDA-Public Use
  Company Number: US-ROCHE-1607204

PATIENT
  Sex: Female
  Weight: 77.18 kg

DRUGS (2)
  1. ESBRIET [Suspect]
     Active Substance: PIRFENIDONE
     Indication: IDIOPATHIC PULMONARY FIBROSIS
     Dosage: 1602 MG TAKE 2 CAPSULES BY MOUTH THREE TIMES DAY
     Route: 048
     Dates: start: 20150417
  2. ESBRIET [Suspect]
     Active Substance: PIRFENIDONE
     Route: 048
     Dates: start: 20150417

REACTIONS (4)
  - Dyspnoea [Unknown]
  - Malaise [Unknown]
  - Diarrhoea [Unknown]
  - Hypophagia [Unknown]
